FAERS Safety Report 7700206-X (Version None)
Quarter: 2011Q3

REPORT INFORMATION
  Report Type: 
  Country: None (occurrence: None)
  Receive Date: 20110822
  Receipt Date: 20110809
  Transmission Date: 20111222
  Serious: Yes (Hospitalization, Other)
  Sender: FDA-Public Use
  Company Number: US-ELI_LILLY_AND_COMPANY-US201011000271

PATIENT
  Sex: Female
  Weight: 65.306 kg

DRUGS (20)
  1. FORTEO [Suspect]
     Indication: OSTEOPOROSIS
     Dosage: 20 UG, DAILY (1/D)
     Dates: start: 20091201
  2. FORTEO [Suspect]
     Dosage: 20 UG, QD
  3. CLOBETASOL PROPIONATE [Concomitant]
     Dosage: 0.05 %, DAILY (1/D)
     Route: 065
  4. FORTEO [Suspect]
     Dosage: 20 UG, DAILY (1/D)
     Dates: start: 20100915
  5. WARFARIN SODIUM [Concomitant]
     Dosage: AMOUNT VARIES ACCORDING TO BLOOD TEST, UNKNOWN
     Route: 065
  6. POTASSIUM CHLORIDE [Concomitant]
     Dosage: 10 MEQ, UNKNOWN
     Route: 065
  7. FORTEO [Suspect]
     Dosage: 20 UG, QD
  8. VITAMIN D [Concomitant]
     Dosage: UNK, MONTHLY (1/M)
     Route: 065
  9. VITAMIN E [Concomitant]
     Dosage: 400 IU, 3/W
     Route: 065
  10. ASACOL [Concomitant]
     Dosage: 800 MG, 2/D
     Route: 065
  11. LEVOTHYROXINE SODIUM [Concomitant]
     Dosage: 50 UG, DAILY (1/D)
     Route: 065
  12. FUROSEMIDE [Concomitant]
     Dosage: 40 MG, DAILY (1/D)
     Route: 065
  13. RAMIPRIL [Concomitant]
     Dosage: 5 MG, DAILY (1/D)
     Route: 065
  14. OMEPRAZOLE [Concomitant]
     Dosage: 20 MG, 2/D
     Route: 065
  15. CITRACAL-D [Concomitant]
     Dosage: UNK, 2/D
     Route: 065
  16. CENTRUM [Concomitant]
     Dosage: UNK, DAILY (1/D)
     Route: 065
  17. ASCORBIC ACID [Concomitant]
     Dosage: 500 MG, 3/D
     Route: 065
  18. TRIAMCINOLONE ACETONIDE [Concomitant]
     Dosage: 0.1 %, 2/W
  19. FORTEO [Suspect]
     Dosage: 20 UG, DAILY (1/D)
     Dates: start: 20100915
  20. MULTIVITAMIN [Concomitant]
     Dosage: UNK, DAILY (1/D)
     Route: 065

REACTIONS (6)
  - INJECTION SITE PAIN [None]
  - DIZZINESS [None]
  - FALL [None]
  - MYALGIA [None]
  - NAUSEA [None]
  - MUSCULAR WEAKNESS [None]
